FAERS Safety Report 19921783 (Version 1)
Quarter: 2021Q4

REPORT INFORMATION
  Report Type: Spontaneous
  Country: US (occurrence: US)
  Receive Date: 20211006
  Receipt Date: 20211006
  Transmission Date: 20220304
  Serious: Yes (Other)
  Sender: FDA-Public Use
  Company Number: US-APPCO PHARMA LLC-2120233

PATIENT
  Age: 53 Year
  Sex: Female
  Weight: 80.91 kg

DRUGS (1)
  1. HYDROXYCHLOROQUINE SULFATE [Suspect]
     Active Substance: HYDROXYCHLOROQUINE SULFATE
     Indication: Rheumatoid arthritis
     Route: 065
     Dates: start: 2020, end: 202106

REACTIONS (3)
  - Leukaemia [Unknown]
  - Medication error [Unknown]
  - Off label use [Unknown]
